FAERS Safety Report 5440510-1 (Version None)
Quarter: 2007Q3

REPORT INFORMATION
  Report Type: 
  Country: None (occurrence: None)
  Receive Date: 20070731
  Receipt Date: 20070607
  Transmission Date: 20080115
  Serious: No
  Sender: FDA-Public Use
  Company Number: US200706001811

PATIENT
  Age: 64 Year
  Sex: Female
  Weight: 101.6 kg

DRUGS (6)
  1. BYETTA [Suspect]
     Indication: TYPE 2 DIABETES MELLITUS
     Dosage: 5 UG 2/D 10UG,2/D 10 UG DAILY (1/D) SUBCUTANEOUS
     Route: 058
     Dates: start: 20070501, end: 20070501
  2. BYETTA [Suspect]
     Indication: TYPE 2 DIABETES MELLITUS
     Dosage: 5 UG 2/D 10UG,2/D 10 UG DAILY (1/D) SUBCUTANEOUS
     Route: 058
     Dates: start: 20070515, end: 20070501
  3. BYETTA [Suspect]
     Indication: TYPE 2 DIABETES MELLITUS
     Dosage: 5 UG 2/D 10UG,2/D 10 UG DAILY (1/D) SUBCUTANEOUS
     Route: 058
     Dates: start: 20070414, end: 20070514
  4. BYETTA [Suspect]
     Indication: TYPE 2 DIABETES MELLITUS
     Dosage: 5 UG 2/D 10UG,2/D 10 UG DAILY (1/D) SUBCUTANEOUS
     Route: 058
     Dates: start: 20070501
  5. ACTOS [Concomitant]
  6. GLIPIZIDE [Concomitant]

REACTIONS (4)
  - BLOOD GLUCOSE INCREASED [None]
  - HYPOGLYCAEMIA [None]
  - NAUSEA [None]
  - WEIGHT DECREASED [None]
